FAERS Safety Report 10412772 (Version 1)
Quarter: 2014Q3

REPORT INFORMATION
  Report Type: Spontaneous
  Country: ES (occurrence: ES)
  Receive Date: 20140827
  Receipt Date: 20140827
  Transmission Date: 20150326
  Serious: Yes (Other)
  Sender: FDA-Public Use
  Company Number: ES-ROXANE LABORATORIES, INC.-2014-RO-01281RO

PATIENT
  Age: 23 Year
  Sex: Female

DRUGS (4)
  1. CYCLOSPORINE A [Suspect]
     Active Substance: CYCLOSPORINE
     Indication: NEPHROTIC SYNDROME
     Dosage: 200 MG
     Route: 065
  2. MYCOPHENOLATE MOFETIL. [Suspect]
     Active Substance: MYCOPHENOLATE MOFETIL
     Indication: PROTEINURIA
     Dosage: 1500 MG
     Route: 065
  3. MYCOPHENOLATE MOFETIL. [Suspect]
     Active Substance: MYCOPHENOLATE MOFETIL
     Dosage: 3 G
     Route: 065
  4. PREDNISONE. [Suspect]
     Active Substance: PREDNISONE
     Indication: LUPUS NEPHRITIS
     Route: 048

REACTIONS (7)
  - Lupus nephritis [Recovered/Resolved]
  - Glomerulonephritis proliferative [Unknown]
  - Nephrotic syndrome [Unknown]
  - Thrombocytopenia [Recovered/Resolved]
  - Gingival hypertrophy [Unknown]
  - Cushingoid [Unknown]
  - Anaemia [Unknown]
